FAERS Safety Report 18401086 (Version 1)
Quarter: 2020Q4

REPORT INFORMATION
  Report Type: Report from Study
  Country: KE (occurrence: KE)
  Receive Date: 20201019
  Receipt Date: 20201019
  Transmission Date: 20210114
  Serious: Yes (Other)
  Sender: FDA-Public Use
  Company Number: KE-SEATTLE GENETICS-2020SGN01307

PATIENT
  Sex: Female

DRUGS (2)
  1. BRENTUXIMAB VEDOTIN [Suspect]
     Active Substance: BRENTUXIMAB VEDOTIN
     Dosage: 130 MILLIGRAM, Q4WEEKS
     Route: 042
     Dates: start: 20200512, end: 20201009
  2. BRENTUXIMAB VEDOTIN [Suspect]
     Active Substance: BRENTUXIMAB VEDOTIN
     Indication: CUTANEOUS T-CELL LYMPHOMA
     Dosage: 130 MILLIGRAM, Q3WEEKS
     Route: 042
     Dates: start: 20190221

REACTIONS (15)
  - Malaise [Unknown]
  - Off label use [Unknown]
  - Nodule [Unknown]
  - Insomnia [Unknown]
  - Weight decreased [Unknown]
  - Cutaneous T-cell lymphoma [Unknown]
  - Pain [Unknown]
  - Neuralgia [Unknown]
  - Nausea [Unknown]
  - Constipation [Unknown]
  - Arthralgia [Unknown]
  - Decreased appetite [Unknown]
  - Pruritus [Unknown]
  - Diarrhoea [Unknown]
  - Vomiting [Unknown]
